FAERS Safety Report 8609260-4 (Version None)
Quarter: 2012Q3

REPORT INFORMATION
  Report Type: 
  Country: None (occurrence: None)
  Receive Date: 20120821
  Receipt Date: 20120815
  Transmission Date: 20120928
  Serious: No
  Sender: FDA-Public Use
  Company Number: US-B.I. PHARMACEUTICALS,INC./RIDGEFIELD-2012-BP-19599BP

PATIENT
  Sex: Female

DRUGS (23)
  1. DAPSONE [Concomitant]
     Indication: SYSTEMIC LUPUS ERYTHEMATOSUS
     Dosage: 50 MG
     Route: 048
  2. PREDNISONE [Concomitant]
     Indication: SYSTEMIC LUPUS ERYTHEMATOSUS
     Dosage: 5 MG
     Route: 048
  3. ASCORBIC ACID [Concomitant]
     Indication: SUPPLEMENTATION THERAPY
  4. ALENDRONATE SODIUM [Concomitant]
     Indication: SUPPLEMENTATION THERAPY
  5. MULTI-VITAMINS [Concomitant]
     Indication: SUPPLEMENTATION THERAPY
  6. TRAMADOL HCL [Concomitant]
     Indication: ARTHRITIS
     Route: 048
  7. VITAMIN B COMPLEX CAP [Concomitant]
     Indication: SUPPLEMENTATION THERAPY
  8. FLUOXETINE HCL [Concomitant]
     Indication: ANXIETY
     Dosage: 60 MG
     Route: 048
  9. HYDROXYCHLOROQUINE SULFATE [Concomitant]
     Indication: SYSTEMIC LUPUS ERYTHEMATOSUS
     Dosage: 400 MG
     Route: 048
  10. IBUPROFEN [Concomitant]
     Indication: ARTHRITIS
     Route: 048
  11. SPIRIVA [Suspect]
     Indication: CHRONIC OBSTRUCTIVE PULMONARY DISEASE
     Dosage: 18 MCG
     Route: 055
     Dates: start: 20120501
  12. ACYCLOVIR [Concomitant]
     Indication: HERPES VIRUS INFECTION
  13. ATENOLOL [Concomitant]
     Indication: HYPERTENSION
     Dosage: 50 MG
     Route: 048
  14. CYCLOBENZAPRINE [Concomitant]
     Indication: ARTHRITIS
     Dosage: 30 MG
     Route: 048
  15. FLUTICASONE PROPIONATE [Concomitant]
     Indication: CHRONIC OBSTRUCTIVE PULMONARY DISEASE
     Route: 055
  16. IPRATROPIUM NEB [Concomitant]
     Indication: CHRONIC OBSTRUCTIVE PULMONARY DISEASE
  17. LORATADINE [Concomitant]
     Indication: HYPERSENSITIVITY
     Dosage: 10 MG
     Route: 048
  18. PENTOXIFYLLINE [Concomitant]
     Indication: POOR PERIPHERAL CIRCULATION
     Dosage: 1200 MG
     Route: 048
  19. ALBUTEROL [Concomitant]
     Indication: CHRONIC OBSTRUCTIVE PULMONARY DISEASE
  20. CLONAZEPAM [Concomitant]
     Indication: ANXIETY
  21. LANSOPRAZOLE [Concomitant]
     Indication: GASTRIC DISORDER
     Dosage: 30 MG
     Route: 048
  22. VENTOLIN HFA [Concomitant]
     Indication: CHRONIC OBSTRUCTIVE PULMONARY DISEASE
  23. VITAMIN E [Concomitant]
     Indication: SUPPLEMENTATION THERAPY

REACTIONS (1)
  - DYSPNOEA [None]
